FAERS Safety Report 12882661 (Version 2)
Quarter: 2016Q4

REPORT INFORMATION
  Report Type: Spontaneous
  Country: US (occurrence: US)
  Receive Date: 20161025
  Receipt Date: 20161103
  Transmission Date: 20170207
  Serious: No
  Sender: FDA-Public Use
  Company Number: US-PFIZER INC-2016489304

PATIENT
  Sex: Male
  Weight: 127 kg

DRUGS (3)
  1. GABAPENTIN. [Concomitant]
     Active Substance: GABAPENTIN
     Indication: DIABETIC NEUROPATHY
  2. LORAZEPAM. [Suspect]
     Active Substance: LORAZEPAM
     Indication: PANIC ATTACK
     Dosage: 1 MG; SOMETIMES TAKE ONE OR TWO
     Dates: start: 201609
  3. GABAPENTIN. [Concomitant]
     Active Substance: GABAPENTIN
     Indication: PANIC ATTACK
     Dosage: 300 MG, 3X/DAY
     Route: 048
     Dates: start: 201609

REACTIONS (2)
  - Product use issue [Unknown]
  - Drug effect incomplete [Unknown]
